FAERS Safety Report 5669204-4 (Version None)
Quarter: 2008Q1

REPORT INFORMATION
  Report Type: 
  Country: None (occurrence: None)
  Receive Date: 20080317
  Receipt Date: 20080307
  Transmission Date: 20080703
  Serious: Yes (Other)
  Sender: FDA-Public Use
  Company Number: PHEH2008US02575

PATIENT
  Sex: Female

DRUGS (1)
  1. COMBIPATCH [Suspect]
     Indication: ARTIFICIAL MENOPAUSE
     Dosage: TWICE PER WEEK
     Route: 062

REACTIONS (2)
  - MALIGNANT MELANOMA [None]
  - SURGERY [None]
